FAERS Safety Report 9283489 (Version 1)
Quarter: 2013Q2

REPORT INFORMATION
  Report Type: Spontaneous
  Country: US (occurrence: None)
  Receive Date: 20130425
  Receipt Date: 20130425
  Transmission Date: 20140414
  Serious: Yes (Other)
  Sender: FDA-Public Use
  Company Number: 2013035459

PATIENT
  Sex: Female

DRUGS (1)
  1. PRIVIGEN (IMMUNE GLOBULIN INTRAVENOUS (HUMAN) 10% LIQUID) [Suspect]
     Dosage: (RECEIVED EVERY 3 WEEKS INSTEAD OF EVERY 4 WEEKS INTRAVENOUS (NOT OTHERWISE SPECIFIED)

REACTIONS (2)
  - Haemoglobin decreased [None]
  - Haemorrhage [None]
